FAERS Safety Report 12297751 (Version 2)
Quarter: 2017Q1

REPORT INFORMATION
  Report Type: Spontaneous
  Country: JP (occurrence: JP)
  Receive Date: 20160422
  Receipt Date: 20170320
  Transmission Date: 20170428
  Serious: Yes (Other)
  Sender: FDA-Public Use
  Company Number: JP-BRISTOL-MYERS SQUIBB COMPANY-BMS-2016-029868

PATIENT

DRUGS (2)
  1. ASUNAPREVIR [Suspect]
     Active Substance: ASUNAPREVIR
     Indication: PRODUCT USED FOR UNKNOWN INDICATION
     Route: 065
  2. DAKLINZA [Suspect]
     Active Substance: DACLATASVIR
     Indication: PRODUCT USED FOR UNKNOWN INDICATION
     Route: 048

REACTIONS (1)
  - Leukoplakia [Unknown]
